FAERS Safety Report 18126816 (Version 4)
Quarter: 2021Q1

REPORT INFORMATION
  Report Type: Report from Study
  Country: None (occurrence: US)
  Receive Date: 20200809
  Receipt Date: 20210201
  Transmission Date: 20210419
  Serious: Yes (Hospitalization, Other)
  Sender: FDA-Public Use
  Company Number: US-ABBVIE-20K-163-3515068-00

PATIENT
  Age: 68 Year
  Sex: Male
  Weight: 84.44 kg

DRUGS (2)
  1. DUOPA [Suspect]
     Active Substance: CARBIDOPA\LEVODOPA
  2. DUOPA [Suspect]
     Active Substance: CARBIDOPA\LEVODOPA
     Indication: PARKINSON^S DISEASE
     Route: 050
     Dates: start: 20200722

REACTIONS (9)
  - Stent placement [Unknown]
  - Device issue [Unknown]
  - Pyrexia [Unknown]
  - Pyrexia [Recovering/Resolving]
  - Pyrexia [Recovered/Resolved]
  - Pyrexia [Recovered/Resolved]
  - Malaise [Unknown]
  - Device dislocation [Unknown]
  - Endoscopic retrograde cholangiopancreatography [Unknown]

NARRATIVE: CASE EVENT DATE: 202008
